FAERS Safety Report 25659893 (Version 2)
Quarter: 2025Q3

REPORT INFORMATION
  Report Type: Spontaneous
  Country: JP (occurrence: JP)
  Receive Date: 20250808
  Receipt Date: 20250916
  Transmission Date: 20251020
  Serious: Yes (Hospitalization)
  Sender: MYLAN
  Company Number: JP-MYLANLABS-2025M1065559

PATIENT
  Age: 56 Year
  Sex: Male

DRUGS (28)
  1. NORVASC [Suspect]
     Active Substance: AMLODIPINE BESYLATE
     Indication: Product used for unknown indication
  2. NORVASC [Suspect]
     Active Substance: AMLODIPINE BESYLATE
  3. NORVASC [Suspect]
     Active Substance: AMLODIPINE BESYLATE
     Route: 048
  4. NORVASC [Suspect]
     Active Substance: AMLODIPINE BESYLATE
     Route: 048
  5. NORVASC [Suspect]
     Active Substance: AMLODIPINE BESYLATE
  6. NORVASC [Suspect]
     Active Substance: AMLODIPINE BESYLATE
  7. NORVASC [Suspect]
     Active Substance: AMLODIPINE BESYLATE
     Route: 048
  8. NORVASC [Suspect]
     Active Substance: AMLODIPINE BESYLATE
     Route: 048
  9. PITAVASTATIN CALCIUM [Suspect]
     Active Substance: PITAVASTATIN CALCIUM
     Indication: Product used for unknown indication
  10. PITAVASTATIN CALCIUM [Suspect]
     Active Substance: PITAVASTATIN CALCIUM
  11. PITAVASTATIN CALCIUM [Suspect]
     Active Substance: PITAVASTATIN CALCIUM
     Route: 048
  12. PITAVASTATIN CALCIUM [Suspect]
     Active Substance: PITAVASTATIN CALCIUM
     Route: 048
  13. PITAVASTATIN CALCIUM [Suspect]
     Active Substance: PITAVASTATIN CALCIUM
  14. PITAVASTATIN CALCIUM [Suspect]
     Active Substance: PITAVASTATIN CALCIUM
  15. PITAVASTATIN CALCIUM [Suspect]
     Active Substance: PITAVASTATIN CALCIUM
     Route: 048
  16. PITAVASTATIN CALCIUM [Suspect]
     Active Substance: PITAVASTATIN CALCIUM
     Route: 048
  17. ACETAMINOPHEN [Suspect]
     Active Substance: ACETAMINOPHEN
     Indication: Product used for unknown indication
  18. ACETAMINOPHEN [Suspect]
     Active Substance: ACETAMINOPHEN
     Route: 048
  19. ACETAMINOPHEN [Suspect]
     Active Substance: ACETAMINOPHEN
     Route: 048
  20. ACETAMINOPHEN [Suspect]
     Active Substance: ACETAMINOPHEN
  21. IRBESARTAN [Suspect]
     Active Substance: IRBESARTAN
     Indication: Product used for unknown indication
  22. IRBESARTAN [Suspect]
     Active Substance: IRBESARTAN
  23. IRBESARTAN [Suspect]
     Active Substance: IRBESARTAN
     Route: 048
  24. IRBESARTAN [Suspect]
     Active Substance: IRBESARTAN
     Route: 048
  25. IRBESARTAN [Suspect]
     Active Substance: IRBESARTAN
  26. IRBESARTAN [Suspect]
     Active Substance: IRBESARTAN
  27. IRBESARTAN [Suspect]
     Active Substance: IRBESARTAN
     Route: 048
  28. IRBESARTAN [Suspect]
     Active Substance: IRBESARTAN
     Route: 048

REACTIONS (5)
  - Suicide attempt [Unknown]
  - Distributive shock [Unknown]
  - Toxicity to various agents [Unknown]
  - Hepatic enzyme increased [Recovered/Resolved]
  - Intentional overdose [Unknown]
